FAERS Safety Report 13630741 (Version 1)
Quarter: 2017Q2

REPORT INFORMATION
  Report Type: Spontaneous
  Country: US (occurrence: US)
  Receive Date: 20170531
  Receipt Date: 20170531
  Transmission Date: 20170830
  Serious: No
  Sender: FDA-Public Use
  Company Number: US-ASTELLAS-1324923

PATIENT
  Sex: Male

DRUGS (8)
  1. TARCEVA [Suspect]
     Active Substance: ERLOTINIB HYDROCHLORIDE
     Indication: NEUTROPENIA
  2. TARCEVA [Suspect]
     Active Substance: ERLOTINIB HYDROCHLORIDE
     Indication: LUNG NEOPLASM MALIGNANT
     Dosage: DAILY
     Route: 048
     Dates: start: 20131128
  3. TRAMADOL. [Concomitant]
     Active Substance: TRAMADOL
  4. FINASTERIDE. [Concomitant]
     Active Substance: FINASTERIDE
  5. ALFUZOSIN [Concomitant]
     Active Substance: ALFUZOSIN
  6. PANTOPRAZOLE [Concomitant]
     Active Substance: PANTOPRAZOLE
  7. NIACIN. [Concomitant]
     Active Substance: NIACIN
  8. LOSARTAN. [Concomitant]
     Active Substance: LOSARTAN

REACTIONS (8)
  - Rash [Not Recovered/Not Resolved]
  - Neuropathy peripheral [Unknown]
  - Fatigue [Not Recovered/Not Resolved]
  - Cough [Not Recovered/Not Resolved]
  - Rash [Unknown]
  - Initial insomnia [Unknown]
  - Asthenia [Not Recovered/Not Resolved]
  - Pruritus [Unknown]
